FAERS Safety Report 7569125-6 (Version None)
Quarter: 2011Q2

REPORT INFORMATION
  Report Type: 
  Country: None (occurrence: None)
  Receive Date: 20110623
  Receipt Date: 20110614
  Transmission Date: 20111010
  Serious: Yes (Death, Hospitalization)
  Sender: FDA-Public Use
  Company Number: US-CELGENEUS-163-21880-11053044

PATIENT
  Sex: Female
  Weight: 68.8 kg

DRUGS (50)
  1. ACYCLOVIR [Concomitant]
     Dosage: 400 MILLIGRAM
     Route: 048
     Dates: start: 20110101, end: 20110602
  2. PIPERACILLIN AND TAZOBACTAM [Concomitant]
     Dosage: 3.375 GRAM
     Route: 048
     Dates: start: 20110501, end: 20110527
  3. LANOXIN [Concomitant]
     Dosage: .125 MILLIGRAM
     Route: 048
     Dates: start: 20110501, end: 20110526
  4. K-TAB [Concomitant]
     Dosage: 10 MILLIEQUIVALENTS
     Route: 048
  5. SODIUM CHLORIDE [Concomitant]
     Dosage: 500 MILLILITER
     Route: 051
  6. DOCUSATE [Concomitant]
     Dosage: 250 MILLIGRAM
     Route: 048
     Dates: start: 20110501, end: 20110526
  7. MILK OF MAGNESIA TAB [Concomitant]
     Indication: CONSTIPATION
     Route: 065
     Dates: start: 20110501
  8. LAXATIVE [Concomitant]
     Indication: CONSTIPATION
     Route: 065
     Dates: start: 20110501
  9. OXYGEN [Concomitant]
     Dosage: 2 LITERS
     Route: 045
     Dates: start: 20110501
  10. LASIX [Concomitant]
     Dosage: 20 MILLIGRAM
     Route: 048
  11. FOLTX [Concomitant]
     Route: 048
  12. AMINOCAPROIC ACID [Concomitant]
     Dosage: 10 G/25ML/HR
     Route: 051
     Dates: start: 20110501, end: 20110527
  13. ACYCLOVIR [Concomitant]
     Dosage: 400 MILLIGRAM
     Route: 048
     Dates: start: 20110501, end: 20110526
  14. FEOSOL [Concomitant]
     Indication: PANCYTOPENIA
     Dosage: 325 MILLIGRAM
     Route: 048
  15. CRESTOR [Concomitant]
     Dosage: 10 MILLIGRAM
     Route: 048
  16. LEVAQUIN [Concomitant]
     Dosage: 750 MILLIGRAM
     Route: 051
  17. AMBIEN [Concomitant]
     Dosage: 5 MILLIGRAM
     Route: 048
     Dates: start: 20110101, end: 20110603
  18. PLATELETS [Concomitant]
     Dosage: 1 UNIT
     Route: 051
     Dates: start: 20110501, end: 20110501
  19. ZOVIRAX [Concomitant]
     Dosage: 800 MILLIGRAM
     Route: 048
  20. MAXIPIME [Concomitant]
     Dosage: 2 GRAM
     Route: 051
  21. DEXTROSE [Concomitant]
     Dosage: 100 MILLILITER
     Route: 051
  22. OLANZAPINE [Concomitant]
     Dosage: 5 MILLIGRAM
     Route: 048
     Dates: start: 20110101
  23. AZACITIDINE [Suspect]
     Route: 065
     Dates: start: 20110318
  24. PIPERACILLIN AND TAZOBACTAM [Concomitant]
     Dosage: 3.375 GRAM
     Route: 048
     Dates: start: 20110101, end: 20110603
  25. LANOXIN [Concomitant]
     Dosage: .125 MILLIGRAM
     Route: 048
     Dates: start: 20110101, end: 20110601
  26. BENADRYL [Concomitant]
     Dosage: 25 MILLIGRAM
     Route: 048
  27. VICODIN [Concomitant]
     Dosage: 5-500MG
     Route: 048
     Dates: start: 20110501, end: 20110526
  28. AMBIEN [Concomitant]
     Dosage: 5 MILLIGRAM
     Route: 048
     Dates: start: 20110501, end: 20110525
  29. RED BLOOD CELLS [Concomitant]
     Dosage: 1 UNIT
     Route: 051
     Dates: start: 20110515, end: 20110515
  30. OCEAN [Concomitant]
     Dosage: 2-3 SPRAYS
     Route: 045
  31. REVLIMID [Suspect]
     Dosage: 50 MILLIGRAM
     Route: 048
     Dates: start: 20110318
  32. MENINGOCOCCAL POLYSACCHARIDE [Suspect]
     Route: 030
     Dates: start: 20110412, end: 20110412
  33. ALTEPLASE [Concomitant]
     Dosage: 2 MILLIGRAM
     Route: 051
     Dates: start: 20110501, end: 20110526
  34. SENNA [Concomitant]
     Dosage: 2 MILLIGRAM
     Route: 048
     Dates: start: 20110501, end: 20110526
  35. AUGMENTIN '125' [Concomitant]
     Indication: PAROTITIS
     Route: 065
     Dates: start: 20110101
  36. LASIX [Concomitant]
     Dosage: 10 MILLIGRAM
     Route: 051
     Dates: start: 20110522, end: 20110522
  37. TOPROL-XL [Concomitant]
     Dosage: 50 MILLIGRAM
     Route: 048
  38. AMICAR [Concomitant]
     Dosage: 1 GRAM
     Route: 051
  39. PROTONIX [Concomitant]
     Indication: THROMBOCYTOPENIA
     Dosage: 40 MILLIGRAM
     Route: 048
     Dates: start: 20110501, end: 20110526
  40. PROTONIX [Concomitant]
     Dosage: 40 MILLIGRAM
     Route: 048
     Dates: start: 20110101, end: 20110602
  41. ATIVAN [Concomitant]
     Dosage: 1 MILLIGRAM
     Route: 048
     Dates: start: 20110501, end: 20110526
  42. TRAZODONE HCL [Concomitant]
     Dosage: 25 MILLIGRAM
     Route: 048
  43. RED BLOOD CELLS [Concomitant]
     Dosage: 2 UNITS
     Route: 051
     Dates: start: 20110512, end: 20110512
  44. FLAGYL [Concomitant]
     Dosage: 500 MILLIGRAM
     Route: 051
     Dates: start: 20110101, end: 20110603
  45. PNEUMOCOCCAL POLYVALENT [Suspect]
     Route: 065
     Dates: start: 20110413, end: 20110413
  46. PLATELETS [Concomitant]
     Indication: THROMBOCYTOPENIA
     Dosage: 2 UNITS
     Route: 051
     Dates: start: 20110514, end: 20110514
  47. PLATELETS [Concomitant]
     Dosage: 2 UNITS
     Route: 051
     Dates: start: 20110511, end: 20110511
  48. TYLENOL-500 [Concomitant]
     Dosage: 650 MILLIGRAM
     Route: 048
  49. ZOFRAN [Concomitant]
     Dosage: 4 MILLIGRAM
     Route: 051
     Dates: start: 20110101, end: 20110519
  50. ATIVAN [Concomitant]
     Dosage: 1 MILLIGRAM
     Route: 048
     Dates: start: 20110101, end: 20110603

REACTIONS (4)
  - ATRIAL FIBRILLATION [None]
  - ASTHENIA [None]
  - THROMBOCYTOPENIA [None]
  - ANXIETY [None]
